FAERS Safety Report 4901055-8 (Version None)
Quarter: 2006Q1

REPORT INFORMATION
  Report Type: 
  Country: None (occurrence: None)
  Receive Date: 20060201
  Receipt Date: 20060116
  Transmission Date: 20060701
  Serious: Yes (Hospitalization, Other)
  Sender: FDA-Public Use
  Company Number: CH200601003046

PATIENT
  Age: 80 Year
  Sex: Female

DRUGS (9)
  1. FLUOXETINE HCL [Suspect]
     Indication: DEPRESSIVE DELUSION
     Dosage: SEE IMAGE
     Route: 048
     Dates: start: 20040219, end: 20040309
  2. FLUOXETINE HCL [Suspect]
     Indication: DEPRESSIVE DELUSION
     Dosage: SEE IMAGE
     Route: 048
     Dates: start: 20040310, end: 20050920
  3. FLUOXETINE HCL [Suspect]
     Indication: DEPRESSIVE DELUSION
     Dosage: SEE IMAGE
     Route: 048
     Dates: start: 20050921, end: 20050923
  4. OLANZAPINE [Suspect]
     Dates: start: 20050916
  5. CLOPIXOL (HYDROCHLORIDE) (ZUCLOPENTHIXOL HYDROCHLORIDE) [Concomitant]
  6. ASPIRIN (ACETYLSALICYLIC ACID) (ASPIRIN (ACETYLSALICYLIC ACID) [Concomitant]
  7. ENATEC /SCH/ (ENALAPRIL MALEATE) [Concomitant]
  8. CALCIUM (CALCIUM) [Concomitant]
  9. VITAMIN D [Concomitant]

REACTIONS (10)
  - COAGULOPATHY [None]
  - CONDITION AGGRAVATED [None]
  - CONSTIPATION [None]
  - CREATININE RENAL CLEARANCE DECREASED [None]
  - DIZZINESS [None]
  - ECCHYMOSIS [None]
  - HAEMATOMA [None]
  - HYPERHIDROSIS [None]
  - MAJOR DEPRESSION [None]
  - TREMOR [None]
